FAERS Safety Report 5600508-7 (Version None)
Quarter: 2008Q1

REPORT INFORMATION
  Report Type: 
  Country: None (occurrence: None)
  Receive Date: 20080118
  Receipt Date: 20080104
  Transmission Date: 20080703
  Serious: Yes (Hospitalization)
  Sender: FDA-Public Use
  Company Number: 230397M07USA

PATIENT
  Age: 36 Year
  Sex: Female

DRUGS (6)
  1. REBIF [Suspect]
     Indication: MULTIPLE SCLEROSIS
     Dosage: 44 MCG, 1 IN 1 WEEKS, SUBCUTANEOUS
     Route: 058
     Dates: start: 20060501
  2. CYMBALTA [Concomitant]
  3. LEVOTHYROXINE (LEVOTHYROXINE/00068001/) [Concomitant]
  4. PROTONIX [Concomitant]
  5. PROVIGIL [Concomitant]
  6. MAXALT (RIZATRIPTAN) [Concomitant]

REACTIONS (4)
  - CONDITION AGGRAVATED [None]
  - DEPRESSION [None]
  - SUICIDE ATTEMPT [None]
  - TREATMENT NONCOMPLIANCE [None]
